FAERS Safety Report 10136550 (Version 1)
Quarter: 2014Q2

REPORT INFORMATION
  Report Type: Spontaneous
  Country: US (occurrence: None)
  Receive Date: 20140428
  Receipt Date: 20140428
  Transmission Date: 20141212
  Serious: No
  Sender: FDA-Public Use
  Company Number: None

PATIENT
  Age: 55 Year
  Sex: Male

DRUGS (2)
  1. SOVALDI [Suspect]
     Dosage: TAKE ONE TABLET DAILY
  2. RIBASPHERE 200MG TAB [Concomitant]

REACTIONS (4)
  - Rash [None]
  - Visual impairment [None]
  - Cataract [None]
  - Dyspnoea [None]
